FAERS Safety Report 4402114-9 (Version None)
Quarter: 2004Q3

REPORT INFORMATION
  Report Type: 
  Country: None (occurrence: None)
  Receive Date: 20040719
  Receipt Date: 20040719
  Transmission Date: 20050211
  Serious: Yes (Life-Threatening, Hospitalization)
  Sender: FDA-Public Use
  Company Number: None

PATIENT
  Age: 52 Year
  Sex: Male
  Weight: 80.2867 kg

DRUGS (18)
  1. DAUNORUBICIN HCL [Suspect]
     Indication: ACUTE MYELOID LEUKAEMIA
     Dosage: 90 MG/M2/DAY DAY 1,2,3
  2. CYTARABINE [Suspect]
     Dosage: 100 MG/M2/DAY DAYS 1-7
  3. ACYCLOVIR [Concomitant]
  4. ALLOPURINOL [Concomitant]
  5. AMIKACIN [Concomitant]
  6. ATIVAN [Concomitant]
  7. AZITHROMYCIN [Concomitant]
  8. COMPAZINE [Concomitant]
  9. GRADEIII MOUTHWASH (BENADRYL,LIDOCAINE, SODIUM BICARB) [Concomitant]
  10. HABITROL [Concomitant]
  11. MAGNESIUM SULFATE [Concomitant]
  12. OXYCODONE HCL [Concomitant]
  13. PERIDEX [Concomitant]
  14. POTASSIUM CHLORIDE [Concomitant]
  15. PREMARIN [Concomitant]
  16. TRILISATE [Concomitant]
  17. TYLENOL [Concomitant]
  18. ZOFRAN [Concomitant]

REACTIONS (8)
  - BACTERAEMIA [None]
  - CHEST PAIN [None]
  - DYSPNOEA [None]
  - EMPHYSEMA [None]
  - LUNG CONSOLIDATION [None]
  - LUNG NEOPLASM MALIGNANT [None]
  - PNEUMONIA [None]
  - RESPIRATORY DISTRESS [None]
